FAERS Safety Report 19662167 (Version 1)
Quarter: 2021Q3

REPORT INFORMATION
  Report Type: Report from Study
  Country: NL (occurrence: AT)
  Receive Date: 20210805
  Receipt Date: 20210805
  Transmission Date: 20211014
  Serious: Yes (Hospitalization, Other)
  Sender: FDA-Public Use
  Company Number: AT-PUMA BIOTECHNOLOGY, LTD.-2020AT001266

PATIENT

DRUGS (53)
  1. TRASTUZUMAB EMTANSINE [Suspect]
     Active Substance: ADO-TRASTUZUMAB EMTANSINE
     Indication: BREAST CANCER
  2. CAPECITABINE. [Suspect]
     Active Substance: CAPECITABINE
     Indication: HER2 POSITIVE BREAST CANCER
     Dosage: 500 MG, OTHER
     Route: 048
     Dates: start: 20191219
  3. PACLITAXEL. [Suspect]
     Active Substance: PACLITAXEL
     Indication: HER2 POSITIVE BREAST CANCER
     Dosage: 177.17 MG, WEEKLY
     Route: 042
     Dates: start: 20180416, end: 20180508
  4. PACLITAXEL. [Suspect]
     Active Substance: PACLITAXEL
     Dosage: 170.35 MG, WEEKLY
     Route: 042
     Dates: start: 20180626, end: 20180718
  5. CAL D VITA [Concomitant]
     Indication: PRODUCT USED FOR UNKNOWN INDICATION
     Dosage: UNK
     Route: 065
     Dates: start: 20190425
  6. DEXAMETHASONE. [Concomitant]
     Active Substance: DEXAMETHASONE
     Indication: PRODUCT USED FOR UNKNOWN INDICATION
     Dosage: UNK
     Route: 065
     Dates: start: 20190628, end: 20190830
  7. NOVALGINA [Concomitant]
     Active Substance: METAMIZOLE SODIUM
     Indication: PRODUCT USED FOR UNKNOWN INDICATION
     Dosage: UNK
     Route: 065
     Dates: start: 20200224, end: 20200410
  8. PACLITAXEL. [Suspect]
     Active Substance: PACLITAXEL
     Dosage: 172.67 MG, WEEKLY
     Route: 042
     Dates: start: 20180605, end: 20180605
  9. PACLITAXEL. [Suspect]
     Active Substance: PACLITAXEL
     Dosage: 171.51 MG, WEEKLY
     Route: 042
     Dates: start: 20181207, end: 20181221
  10. PACLITAXEL ALBUMIN [Suspect]
     Active Substance: PACLITAXEL
     Indication: HER2 POSITIVE BREAST CANCER
  11. PANTOLOC [PANTOPRAZOLE] [Concomitant]
     Active Substance: PANTOPRAZOLE SODIUM
     Indication: PRODUCT USED FOR UNKNOWN INDICATION
     Dosage: UNK
     Route: 065
     Dates: start: 20191011
  12. BEPANTHEN EYE [Concomitant]
     Active Substance: DEXPANTHENOL\HYALURONATE SODIUM
     Indication: CONJUNCTIVITIS
     Dosage: UNK
     Route: 065
     Dates: start: 20180619
  13. XGEVA [Concomitant]
     Active Substance: DENOSUMAB
     Indication: PRODUCT USED FOR UNKNOWN INDICATION
     Dosage: UNK
     Route: 065
     Dates: start: 20191219, end: 20200410
  14. TAXOL [Suspect]
     Active Substance: PACLITAXEL
     Indication: HER2 POSITIVE BREAST CANCER
     Dosage: 147.76 MG WEEKLY RECENT DOSE ON 09/APR/2018
     Route: 042
     Dates: start: 20180328, end: 20180409
  15. TRASTUZUMAB. [Suspect]
     Active Substance: TRASTUZUMAB
     Indication: HER2 POSITIVE BREAST CANCER
     Dosage: 408 MG, 3 WEEKS
     Route: 042
     Dates: start: 20180423, end: 20180423
  16. TRASTUZUMAB. [Suspect]
     Active Substance: TRASTUZUMAB
     Dosage: 378 MG, EVERY 3 WEEKS; LAST DOSE WAS RECEIVED ON 09/JAN/2019
     Route: 041
     Dates: start: 20181214, end: 20190109
  17. PERTUZUMAB. [Suspect]
     Active Substance: PERTUZUMAB
     Indication: HER2 POSITIVE BREAST CANCER
     Dosage: 840 MG, 3 WEEKS, MOST RECENT DOSE PRIOR TO THE EVENT: 14/DEC/2018
     Route: 042
     Dates: start: 20180328, end: 20180328
  18. CYCLOPHOSPHAMIDE. [Suspect]
     Active Substance: CYCLOPHOSPHAMIDE
     Indication: BREAST CANCER
     Dosage: 2.5 MG, EVERY 0.5 WEEK
     Route: 048
  19. PACLITAXEL. [Suspect]
     Active Substance: PACLITAXEL
     Dosage: 147.76 MG, 1/WEEK
     Route: 042
     Dates: start: 20180522, end: 20180529
  20. PACLITAXEL. [Suspect]
     Active Substance: PACLITAXEL
     Dosage: 172.67 MG, WEEKLY
     Route: 042
     Dates: start: 20190116, end: 20190116
  21. PACLITAXEL ALBUMIN [Suspect]
     Active Substance: PACLITAXEL
     Indication: BREAST CANCER
     Dosage: 177.17 MG, DOSE ON 08/MAY/2018 MOST RECENT DOSE PRIOR TO THE EVENT: 16/JAN/2019
     Route: 042
     Dates: start: 20180416
  22. OCTENISEPT [OCTENIDINE HYDROCHLORIDE;PHENOXYETHANOL] [Concomitant]
     Indication: ONYCHOLYSIS
     Dosage: UNK
     Route: 065
     Dates: start: 20180725
  23. NERLYNX [Suspect]
     Active Substance: NERATINIB
     Indication: BREAST CANCER
     Dosage: 1440 MG, QD
     Route: 048
     Dates: start: 20200119, end: 20200129
  24. TAXOL [Suspect]
     Active Substance: PACLITAXEL
     Indication: BREAST CANCER
  25. TRASTUZUMAB. [Suspect]
     Active Substance: TRASTUZUMAB
     Indication: HER2 POSITIVE BREAST CANCER
     Dosage: 600 MG, 3 WEEKS, MOST RECENT DOSE PRIOR TO THE EVENT: 11/OCT/2019.
     Route: 041
     Dates: start: 20180328, end: 20180328
  26. TRASTUZUMAB. [Suspect]
     Active Substance: TRASTUZUMAB
     Dosage: 600 MG, 3 WEEKS
     Route: 042
     Dates: start: 20191011, end: 20191011
  27. PACLITAXEL. [Suspect]
     Active Substance: PACLITAXEL
     Dosage: 172.67 MG, 1/WEEK
     Route: 042
     Dates: start: 20180515, end: 20180515
  28. PACLITAXEL. [Suspect]
     Active Substance: PACLITAXEL
     Dosage: 172.67 MG, WEEKLY
     Route: 042
     Dates: start: 20190102, end: 20190102
  29. PACLITAXEL. [Suspect]
     Active Substance: PACLITAXEL
     Dosage: 171.51 MG, WEEKLY
     Route: 042
     Dates: start: 20190109, end: 20190109
  30. HYDAL [Concomitant]
     Active Substance: HYDROMORPHONE HYDROCHLORIDE
     Indication: PRODUCT USED FOR UNKNOWN INDICATION
     Dosage: UNK
     Route: 065
     Dates: start: 20200311, end: 20200410
  31. HYDAL [Concomitant]
     Active Substance: HYDROMORPHONE HYDROCHLORIDE
     Dosage: UNK
     Route: 065
     Dates: start: 20200228, end: 20200311
  32. TRASTUZUMAB. [Suspect]
     Active Substance: TRASTUZUMAB
     Dosage: 384 MG, 3 WEEKS
     Route: 042
     Dates: start: 20180515, end: 20180605
  33. TRASTUZUMAB. [Suspect]
     Active Substance: TRASTUZUMAB
     Dosage: 378 MG, EVERY 3 WEEKS
     Route: 042
     Dates: start: 20181102, end: 20181123
  34. PERTUZUMAB. [Suspect]
     Active Substance: PERTUZUMAB
     Dosage: 420 MG, 3 WEEKS
     Route: 042
     Dates: start: 20181214, end: 20190109
  35. METHOTREXATE. [Suspect]
     Active Substance: METHOTREXATE
     Indication: HER2 POSITIVE BREAST CANCER
     Dosage: 2.5 MG, 0.5/WEEK
     Route: 048
     Dates: start: 20200219, end: 20200309
  36. METHOTREXATE. [Suspect]
     Active Substance: METHOTREXATE
     Indication: BREAST CANCER
  37. NAVELBINE [Suspect]
     Active Substance: VINORELBINE TARTRATE
     Indication: HER2 POSITIVE BREAST CANCER
     Dosage: 50 MG MOST RECENT DOSE 25/OCT/2019
     Route: 048
     Dates: start: 20191011, end: 20191025
  38. NAVELBINE [Suspect]
     Active Substance: VINORELBINE TARTRATE
     Indication: BREAST CANCER
  39. ABRAXANE [Suspect]
     Active Substance: PACLITAXEL
     Indication: HER2 POSITIVE BREAST CANCER
     Dosage: 177.17 MG, 08/MAY/2018MOST RECENT DOSE PRIOR TO THE EVENT: 16/JAN/2019
     Route: 042
     Dates: start: 20180416
  40. CAPECITABINE. [Suspect]
     Active Substance: CAPECITABINE
     Indication: BREAST CANCER
     Dosage: 500 MG, FREQUENCY: OTHER MOST RECENT DOSE PRIOR TO THE EVENT: 19/DEC/2019
     Route: 048
     Dates: start: 20191126, end: 20191219
  41. PACLITAXEL. [Suspect]
     Active Substance: PACLITAXEL
     Dosage: 177.17 MG, WEEKLY
     Route: 042
     Dates: start: 20180522, end: 20180529
  42. PACLITAXEL. [Suspect]
     Active Substance: PACLITAXEL
     Dosage: 177.17 MG, WEEKLY
     Route: 042
     Dates: start: 20180612, end: 20180619
  43. ENTEROBENE [Concomitant]
     Indication: PRODUCT USED FOR UNKNOWN INDICATION
     Dosage: UNK
     Route: 065
     Dates: start: 20200108, end: 20200113
  44. NERLYNX [Suspect]
     Active Substance: NERATINIB
     Indication: HER2 POSITIVE BREAST CANCER
     Dosage: 1440 MG QD, MOST RECENT DOSE ON 18?JAN?2020
     Route: 048
     Dates: start: 20200108, end: 20200118
  45. TRASTUZUMAB EMTANSINE [Suspect]
     Active Substance: ADO-TRASTUZUMAB EMTANSINE
     Indication: HER2 POSITIVE BREAST CANCER
     Dosage: 230.4 MG, 3 WEEKS, DOSE ON 17/MAY/2019, MOST RECENT DOSE PRIOR TO THE EVENT: 28/JUN/2019
     Route: 042
     Dates: start: 20190131
  46. TRASTUZUMAB. [Suspect]
     Active Substance: TRASTUZUMAB
     Dosage: 372 MG, 3 WEEKS
     Route: 042
     Dates: start: 20180626, end: 20181010
  47. PERTUZUMAB. [Suspect]
     Active Substance: PERTUZUMAB
     Dosage: 420 MG, EVERY 3 WEEKS
     Route: 042
     Dates: start: 20180423, end: 20180423
  48. CYCLOPHOSPHAMIDE. [Suspect]
     Active Substance: CYCLOPHOSPHAMIDE
     Indication: HER2 POSITIVE BREAST CANCER
     Dosage: 50 MG, QD, MOST RECENT DOSE ON 09/MAR/2020
     Route: 048
     Dates: start: 20200219, end: 20200309
  49. PACLITAXEL. [Suspect]
     Active Substance: PACLITAXEL
     Indication: BREAST CANCER
     Dosage: 147.76 MG, WEEKLY, LAST DOSE 09/APR/2018
     Route: 042
     Dates: start: 20180328, end: 20210409
  50. PACLITAXEL. [Suspect]
     Active Substance: PACLITAXEL
     Dosage: 171.51 MG, WEEKLY
     Route: 042
     Dates: start: 20181102, end: 20181123
  51. KYTRIL [Concomitant]
     Active Substance: GRANISETRON HYDROCHLORIDE
     Indication: PRODUCT USED FOR UNKNOWN INDICATION
     Dosage: UNK
     Route: 065
     Dates: start: 20190628, end: 20190830
  52. BEPANTHENE [Concomitant]
     Active Substance: DEXPANTHENOL
     Indication: ONYCHOLYSIS
     Dosage: UNK
     Route: 065
     Dates: start: 20180725
  53. ZOFRAN [Concomitant]
     Active Substance: ONDANSETRON HYDROCHLORIDE
     Indication: PRODUCT USED FOR UNKNOWN INDICATION
     Dosage: UNK
     Route: 065
     Dates: start: 20200309, end: 20200410

REACTIONS (11)
  - C-reactive protein increased [Recovered/Resolved]
  - Overdose [Unknown]
  - Dyspnoea [Recovered/Resolved]
  - Diarrhoea [Recovered/Resolved]
  - Stomatitis [Recovered/Resolved]
  - Skin lesion [Recovering/Resolving]
  - Pain of skin [Recovered/Resolved]
  - Off label use [Unknown]
  - Tumour pain [Recovered/Resolved]
  - Febrile neutropenia [Recovered/Resolved]
  - Intentional product use issue [Unknown]

NARRATIVE: CASE EVENT DATE: 20190920
